FAERS Safety Report 8926664 (Version 1)
Quarter: 2012Q4

REPORT INFORMATION
  Report Type: Report from Study
  Country: JP (occurrence: JP)
  Receive Date: 20121127
  Receipt Date: 20121127
  Transmission Date: 20130627
  Serious: Yes (Other)
  Sender: FDA-Public Use
  Company Number: JP-VERTEX PHARMACEUTICAL INC.-AE-2012-008223

PATIENT
  Age: 69 Year
  Sex: Female

DRUGS (24)
  1. VX-950 (TELAPREVIR) [Suspect]
     Indication: CHRONIC HEPATITIS C
     Dosage: 1500 mg, qd
     Route: 048
     Dates: start: 20120130, end: 20120327
  2. VX-950 (TELAPREVIR) [Suspect]
     Dosage: 750 mg, qd
     Route: 048
     Dates: start: 20120328, end: 20120417
  3. VX-950 (TELAPREVIR) [Suspect]
     Dosage: 1000 mg, qd
     Route: 048
     Dates: start: 20120418, end: 20120423
  4. PEGINTRON                          /01543001/ [Suspect]
     Indication: CHRONIC HEPATITIS C
     Dosage: 1.5 ?g/kg, qw
     Route: 058
     Dates: start: 20120130, end: 20120206
  5. PEGINTRON                          /01543001/ [Suspect]
     Dosage: 1.15 ?g/kg, qw
     Route: 058
     Dates: start: 20120207, end: 20120214
  6. PEGINTRON                          /01543001/ [Suspect]
     Dosage: 1.34 ?g/kg, qw
     Route: 058
     Dates: start: 20120215, end: 20120515
  7. PEGINTRON                          /01543001/ [Suspect]
     Dosage: 1.34 ?g/kg, qw
     Route: 058
     Dates: start: 20120523, end: 20120718
  8. REBETOL [Suspect]
     Indication: CHRONIC HEPATITIS C
     Dosage: 400 mg, qd
     Route: 048
     Dates: start: 20120130, end: 20120314
  9. REBETOL [Suspect]
     Dosage: 200 mg, qd
     Route: 048
     Dates: start: 20120315, end: 20120320
  10. REBETOL [Suspect]
     Dosage: 200 mg, qd
     Route: 048
     Dates: start: 20120328, end: 20120419
  11. REBETOL [Suspect]
     Dosage: 200 mg, qd
     Route: 048
     Dates: start: 20120502, end: 20120508
  12. REBETOL [Suspect]
     Dosage: 400 mg, qd
     Route: 048
     Dates: start: 20120509, end: 20120515
  13. REBETOL [Suspect]
     Dosage: 200 mg, qd
     Route: 048
     Dates: start: 20120523, end: 20120605
  14. REBETOL [Suspect]
     Dosage: 400 mg, qd
     Route: 048
     Dates: start: 20120606, end: 20120626
  15. REBETOL [Suspect]
     Dosage: 600 mg, qd
     Route: 048
     Dates: start: 20120627, end: 20120724
  16. REBETOL [Suspect]
     Dosage: UNK
  17. MAGMITT [Concomitant]
     Dosage: 990 mg, qd
     Route: 048
  18. MAGMITT [Concomitant]
     Route: 048
  19. PREMINENT [Concomitant]
     Dosage: 1 DF, qd
     Route: 048
  20. PREMINENT [Concomitant]
     Route: 048
  21. AMLODIPINE [Concomitant]
     Dosage: 2.5 mg, qd
     Route: 048
     Dates: end: 20120605
  22. AMLODIPINE [Concomitant]
     Route: 048
     Dates: end: 20120605
  23. SODIUM RABEPRAZOLE [Concomitant]
     Dosage: 10 mg, qd
     Route: 048
  24. ZYLORIC [Concomitant]
     Dosage: 200 mg, qd
     Route: 048
     Dates: start: 20120208

REACTIONS (2)
  - Loss of consciousness [Recovered/Resolved]
  - Anaemia [Not Recovered/Not Resolved]
